FAERS Safety Report 25467971 (Version 1)
Quarter: 2025Q2

REPORT INFORMATION
  Report Type: Spontaneous
  Country: US (occurrence: None)
  Receive Date: 20250620
  Receipt Date: 20250620
  Transmission Date: 20250716
  Serious: Yes (Congenital Anomaly)
  Sender: FDA-CTU
  Company Number: None

PATIENT
  Sex: Female

DRUGS (2)
  1. CIMZIA [Suspect]
     Active Substance: CERTOLIZUMAB PEGOL
     Indication: Psoriatic arthropathy
  2. VALIUM [Concomitant]
     Active Substance: DIAZEPAM

REACTIONS (4)
  - Maternal exposure during pregnancy [None]
  - Maternal drugs affecting foetus [None]
  - Hypospadias [None]
  - Penis disorder [None]

NARRATIVE: CASE EVENT DATE: 20250619
